FAERS Safety Report 6479409-0 (Version None)
Quarter: 2009Q4

REPORT INFORMATION
  Report Type: 
  Country: None (occurrence: None)
  Receive Date: 20091207
  Receipt Date: 20090226
  Transmission Date: 20100525
  Serious: No
  Sender: FDA-Public Use
  Company Number: US-AMGEN-KDL335873

PATIENT
  Sex: Female

DRUGS (2)
  1. ENBREL [Suspect]
     Indication: RHEUMATOID ARTHRITIS
     Route: 058
     Dates: start: 20040712
  2. METHOTREXATE [Concomitant]
     Route: 048
     Dates: start: 20080101

REACTIONS (4)
  - ARTHRALGIA [None]
  - ASTHENOPIA [None]
  - HEADACHE [None]
  - NASAL CONGESTION [None]
